FAERS Safety Report 6111278-0 (Version None)
Quarter: 2009Q1

REPORT INFORMATION
  Report Type: 
  Country: None (occurrence: None)
  Receive Date: 20090309
  Receipt Date: 20090220
  Transmission Date: 20090719
  Serious: Yes (Hospitalization)
  Sender: FDA-Public Use
  Company Number: 199458

PATIENT
  Age: 68 Year
  Sex: Male

DRUGS (4)
  1. LEUCOVORIN CALCIUM [Suspect]
     Indication: COLORECTAL CANCER
     Dosage: INTRAVENOUS
     Route: 042
     Dates: start: 20080915
  2. FLUOROURACIL [Suspect]
     Indication: COLORECTAL CANCER
     Dosage: INTRAVENOUS
     Route: 042
     Dates: start: 20080915
  3. IRINOTECAN HCL [Suspect]
     Dates: start: 20080915
  4. (SUNITINIB) [Suspect]
     Indication: COLORECTAL CANCER
     Dates: start: 20080915

REACTIONS (6)
  - CULTURE POSITIVE [None]
  - DIARRHOEA [None]
  - HYPERHIDROSIS [None]
  - LOWER RESPIRATORY TRACT INFECTION [None]
  - PSEUDOMONAS INFECTION [None]
  - SEPSIS [None]
